FAERS Safety Report 4730363-9 (Version None)
Quarter: 2005Q3

REPORT INFORMATION
  Report Type: 
  Country: None (occurrence: None)
  Receive Date: 20050729
  Receipt Date: 20050729
  Transmission Date: 20060218
  Serious: Yes (Other)
  Sender: FDA-Public Use
  Company Number: None

PATIENT
  Age: 87 Year
  Weight: 73.9363 kg

DRUGS (1)
  1. ZITHROMAX [Suspect]
     Indication: URINARY TRACT INFECTION
     Dosage: 500MG EVERY 24 HOURS INTRAVENOUS
     Route: 042
     Dates: start: 20050726, end: 20050726

REACTIONS (1)
  - RASH [None]
